FAERS Safety Report 9227364 (Version 1)
Quarter: 2013Q2

REPORT INFORMATION
  Report Type: Spontaneous
  Country: AR (occurrence: AR)
  Receive Date: 20130412
  Receipt Date: 20130412
  Transmission Date: 20140414
  Serious: Yes (Hospitalization, Other)
  Sender: FDA-Public Use
  Company Number: PHHY2013AR035130

PATIENT
  Sex: Male

DRUGS (1)
  1. DIOVAN [Suspect]
     Dosage: 2 DF (160MG) DAILY
     Route: 048
     Dates: start: 2002

REACTIONS (3)
  - Pneumonia bacterial [Recovering/Resolving]
  - Amnesia [Recovered/Resolved]
  - General physical health deterioration [Unknown]
